FAERS Safety Report 22698508 (Version 2)
Quarter: 2023Q4

REPORT INFORMATION
  Report Type: Spontaneous
  Country: JP (occurrence: JP)
  Receive Date: 20230712
  Receipt Date: 20231011
  Transmission Date: 20240109
  Serious: Yes (Other)
  Sender: FDA-Public Use
  Company Number: JP-ONO-2023JP017561

PATIENT
  Age: 70 Year
  Sex: Male
  Weight: 77 kg

DRUGS (7)
  1. OPDIVO [Suspect]
     Active Substance: NIVOLUMAB
     Indication: Metastatic renal cell carcinoma
     Dosage: 240 MG
     Route: 041
     Dates: start: 20230511, end: 20230526
  2. CABOMETYX [Concomitant]
     Active Substance: CABOZANTINIB S-MALATE
     Indication: Metastatic renal cell carcinoma
     Dosage: 20 MG, EVERYDAY, TWO HOURS AFTER BREAKFAST
     Route: 048
     Dates: start: 20230511, end: 20230529
  3. CALONAL [Concomitant]
     Active Substance: ACETAMINOPHEN
     Indication: Product used for unknown indication
     Dosage: 300, Q8H
     Route: 048
  4. CALONAL [Concomitant]
     Active Substance: ACETAMINOPHEN
     Dosage: 500, PRN
     Route: 048
  5. AMLODIPINE\TELMISARTAN [Concomitant]
     Active Substance: AMLODIPINE\TELMISARTAN
     Indication: Product used for unknown indication
     Dosage: 1 DF, EVERYDAY, AFTER BREAKFAST
     Route: 048
  6. VONOPRAZAN FUMARATE [Concomitant]
     Active Substance: VONOPRAZAN FUMARATE
     Indication: Product used for unknown indication
     Dosage: 10 MG, EVERYDAY, AFTER BREAKFAST
     Route: 048
  7. HEPARINOID [Concomitant]
     Indication: Product used for unknown indication
     Dosage: Q12H, HANDS AND FEET
     Route: 061

REACTIONS (2)
  - Cardiac failure [Unknown]
  - Myocarditis [Not Recovered/Not Resolved]

NARRATIVE: CASE EVENT DATE: 20230530
